FAERS Safety Report 8939224 (Version 4)
Quarter: 2013Q4

REPORT INFORMATION
  Report Type: Report from Study
  Country: JP (occurrence: JP)
  Receive Date: 20121203
  Receipt Date: 20131105
  Transmission Date: 20140711
  Serious: Yes (Hospitalization, Other)
  Sender: FDA-Public Use
  Company Number: JP-VERTEX PHARMACEUTICALS INC.-2012-025399

PATIENT
  Age: 47 Year
  Sex: Male

DRUGS (7)
  1. VX-950 (TELAPREVIR) [Suspect]
     Indication: CHRONIC HEPATITIS C
     Dosage: 2250 MG, QD
     Route: 048
     Dates: start: 20120821, end: 20121002
  2. VX-950 (TELAPREVIR) [Suspect]
     Dosage: 1500 MG, QD
     Route: 048
     Dates: start: 20121002, end: 20121008
  3. RIBAVIRIN [Suspect]
     Indication: CHRONIC HEPATITIS C
     Dosage: 1000 MG, QD
     Route: 048
     Dates: start: 20120821, end: 20120904
  4. RIBAVIRIN [Suspect]
     Dosage: 600 MG, QD
     Route: 048
     Dates: start: 20120905, end: 20121008
  5. PEGINTRON [Suspect]
     Indication: CHRONIC HEPATITIS C
     Dosage: 1.5 ?G/KG, QW
     Route: 058
     Dates: start: 20120821, end: 20121016
  6. MYSLEE [Concomitant]
     Dosage: 10 MG, QD
     Route: 048
     Dates: start: 20121002, end: 20121008
  7. PARIET [Concomitant]
     Dosage: 10 MG, QD
     Route: 048
     Dates: start: 20121002, end: 20121008

REACTIONS (2)
  - Schizophrenia [Recovered/Resolved]
  - Anaemia [Recovered/Resolved]
